FAERS Safety Report 10062226 (Version 1)
Quarter: 2014Q2

REPORT INFORMATION
  Report Type: Spontaneous
  Country: US (occurrence: US)
  Receive Date: 20140407
  Receipt Date: 20140407
  Transmission Date: 20141212
  Serious: Yes (Other)
  Sender: FDA-Public Use
  Company Number: US-PFIZER INC-2014093600

PATIENT
  Age: 71 Year
  Sex: Male
  Weight: 72.56 kg

DRUGS (4)
  1. VIAGRA [Suspect]
     Indication: ERECTILE DYSFUNCTION
     Dosage: UNK (BY SPLITTING 100MG TABLETS), AS NEEDED
     Dates: start: 201304, end: 201308
  2. ACCUPRIL [Concomitant]
     Indication: BLOOD PRESSURE ABNORMAL
     Dosage: 2 MG, 2X/DAY
  3. AMLODIPINE [Concomitant]
     Indication: CARDIAC DISORDER
     Dosage: 5 MG, DAILY
  4. PLAVIX [Concomitant]
     Dosage: UNK

REACTIONS (1)
  - Arterial occlusive disease [Unknown]
